FAERS Safety Report 7337889-2 (Version None)
Quarter: 2011Q1

REPORT INFORMATION
  Report Type: 
  Country: None (occurrence: None)
  Receive Date: 20110303
  Receipt Date: 20110303
  Transmission Date: 20110831
  Serious: Yes (Hospitalization)
  Sender: FDA-Public Use
  Company Number: None

PATIENT
  Sex: Male
  Weight: 11 kg

DRUGS (2)
  1. CARBOPLATIN [Suspect]
     Dosage: 364 MG
     Dates: end: 20110219
  2. THIOTEPA [Suspect]
     Dosage: 214 MG
     Dates: end: 20110219

REACTIONS (4)
  - BLOOD STEM CELL HARVEST [None]
  - DIARRHOEA [None]
  - VOMITING [None]
  - IRRITABILITY [None]
